FAERS Safety Report 8484784-1 (Version None)
Quarter: 2012Q3

REPORT INFORMATION
  Report Type: 
  Country: None (occurrence: None)
  Receive Date: 20120703
  Receipt Date: 20120622
  Transmission Date: 20120928
  Serious: Yes (Other)
  Sender: FDA-Public Use
  Company Number: IT-JNJFOC-20120612877

PATIENT
  Sex: Male

DRUGS (2)
  1. AMOXICILLIN + CLAVULANATE POTASSIUM [Concomitant]
     Indication: TONSILLITIS
     Route: 065
     Dates: start: 20120616, end: 20120616
  2. IBUPROFEN [Suspect]
     Indication: PYREXIA
     Route: 048
     Dates: start: 20120616, end: 20120616

REACTIONS (2)
  - FACE OEDEMA [None]
  - BRONCHOSPASM [None]
